FAERS Safety Report 7460622-0 (Version None)
Quarter: 2011Q2

REPORT INFORMATION
  Report Type: 
  Country: None (occurrence: None)
  Receive Date: 20110505
  Receipt Date: 20110426
  Transmission Date: 20111010
  Serious: Yes (Hospitalization, Other)
  Sender: FDA-Public Use
  Company Number: FR-PFIZER INC-2011094826

PATIENT
  Age: 77 Year
  Sex: Female

DRUGS (7)
  1. CORDARONE [Suspect]
     Dosage: 200MG, 5 TIMES WEEKLY
     Route: 048
     Dates: start: 20100301, end: 20110118
  2. ALISKIREN [Concomitant]
     Dosage: UNK
     Dates: end: 20110121
  3. CORDARONE [Suspect]
     Dosage: 200 MG, UNK
     Route: 048
     Dates: end: 20100301
  4. PREVISCAN [Concomitant]
     Dosage: UNK
     Dates: end: 20110108
  5. TAVANIC [Concomitant]
     Dosage: UNK
     Dates: start: 20110106, end: 20110117
  6. ROCEPHIN [Concomitant]
     Dosage: UNK
     Dates: start: 20110106, end: 20110117
  7. FLUDEX [Concomitant]
     Dosage: UNK
     Dates: end: 20110121

REACTIONS (3)
  - HYPERTHYROIDISM [None]
  - ELECTROCARDIOGRAM QT PROLONGED [None]
  - CEREBROVASCULAR ACCIDENT [None]
